FAERS Safety Report 13947948 (Version 2)
Quarter: 2017Q3

REPORT INFORMATION
  Report Type: Spontaneous
  Country: US (occurrence: US)
  Receive Date: 20170908
  Receipt Date: 20170929
  Transmission Date: 20171128
  Serious: No
  Sender: FDA-Public Use
  Company Number: US-PFIZER INC-2017387467

PATIENT
  Age: 37 Year
  Sex: Female

DRUGS (1)
  1. XELJANZ XR [Suspect]
     Active Substance: TOFACITINIB CITRATE
     Dosage: 11 MG, UNK

REACTIONS (11)
  - Gastrooesophageal reflux disease [Unknown]
  - Gait disturbance [Unknown]
  - Sleep disorder [Unknown]
  - Mucosal dryness [Unknown]
  - Anxiety [Unknown]
  - Disturbance in attention [Unknown]
  - Musculoskeletal discomfort [Unknown]
  - Vitamin D deficiency [Unknown]
  - Depression [Unknown]
  - Headache [Unknown]
  - Malaise [Unknown]
